FAERS Safety Report 7083831-1 (Version None)
Quarter: 2010Q4

REPORT INFORMATION
  Report Type: 
  Country: None (occurrence: None)
  Receive Date: 20101025
  Receipt Date: 20101013
  Transmission Date: 20110411
  Serious: Yes (Death, Hospitalization)
  Sender: FDA-Public Use
  Company Number: 107264

PATIENT
  Age: 54 Year
  Sex: Male

DRUGS (1)
  1. PACLITAXEL [Suspect]

REACTIONS (3)
  - HAEMATOCRIT DECREASED [None]
  - RENAL HAEMORRHAGE [None]
  - THROMBOSIS IN DEVICE [None]
